FAERS Safety Report 4300660-X (Version None)
Quarter: 2004Q1

REPORT INFORMATION
  Report Type: 
  Country: None (occurrence: None)
  Receive Date: 20040217
  Receipt Date: 20040204
  Transmission Date: 20041129
  Serious: Yes (Hospitalization, Disabling)
  Sender: FDA-Public Use
  Company Number: NSADSS2003002271

PATIENT
  Age: 13 Year
  Sex: Female

DRUGS (5)
  1. RISPERDAL [Suspect]
     Indication: ABNORMAL BEHAVIOUR
     Dosage: 0.5 + 1.25 + 150 MG, ORAL - SEE IMAGE
     Route: 048
     Dates: start: 20021101, end: 20030202
  2. RISPERDAL [Suspect]
     Indication: ABNORMAL BEHAVIOUR
     Dosage: 0.5 + 1.25 + 150 MG, ORAL - SEE IMAGE
     Route: 048
     Dates: start: 20020201
  3. RISPERDAL [Suspect]
     Indication: ABNORMAL BEHAVIOUR
     Dosage: 0.5 + 1.25 + 150 MG, ORAL - SEE IMAGE
     Route: 048
     Dates: start: 20021001
  4. RITALIN (TABLETS) METHYLPHENIDATE HYDROCHLORIDE [Concomitant]
  5. ALESSE 28 (UNSPECIFIED) EUGYNON [Concomitant]

REACTIONS (18)
  - AGGRESSION [None]
  - ANXIETY [None]
  - COGNITIVE DISORDER [None]
  - DELUSION [None]
  - FEAR [None]
  - HALLUCINATION [None]
  - MENTAL IMPAIRMENT [None]
  - MENTAL RETARDATION SEVERITY UNSPECIFIED [None]
  - PAIN [None]
  - PARANOIA [None]
  - PSYCHOTIC DISORDER [None]
  - SCHOOL REFUSAL [None]
  - SOCIAL AVOIDANT BEHAVIOUR [None]
  - SUICIDAL IDEATION [None]
  - SUICIDE ATTEMPT [None]
  - TOURETTE'S DISORDER [None]
  - TREMOR [None]
  - WEIGHT DECREASED [None]
